FAERS Safety Report 4974588-6 (Version None)
Quarter: 2006Q2

REPORT INFORMATION
  Report Type: 
  Country: None (occurrence: None)
  Receive Date: 20060410
  Receipt Date: 20060401
  Transmission Date: 20061013
  Serious: Yes (Death)
  Sender: FDA-Public Use
  Company Number: 2005108445

PATIENT
  Age: 78 Year
  Sex: Male

DRUGS (3)
  1. CARDURA [Suspect]
     Indication: BENIGN PROSTATIC HYPERPLASIA
     Dosage: 4 MG (2 MG, 2 IN 1 D) ORAL
     Route: 048
  2. AMLODIPINE [Concomitant]
  3. VOLTAREN [Concomitant]

REACTIONS (1)
  - HAEMATURIA [None]
